FAERS Safety Report 5253132-2 (Version None)
Quarter: 2007Q1

REPORT INFORMATION
  Report Type: 
  Country: None (occurrence: None)
  Receive Date: 20070301
  Receipt Date: 20070221
  Transmission Date: 20070707
  Serious: Yes (Hospitalization)
  Sender: FDA-Public Use
  Company Number: FR-GLAXOSMITHKLINE-B0457512A

PATIENT
  Age: 59 Year
  Sex: Female

DRUGS (2)
  1. VALACYCLOVIR HCL [Suspect]
     Indication: HERPES ZOSTER
     Dosage: 500MG SIX TIMES PER DAY
     Route: 048
     Dates: start: 20070111, end: 20070117
  2. DIANTALVIC [Concomitant]
     Route: 065

REACTIONS (5)
  - ABDOMINAL PAIN [None]
  - CALCULUS URETERIC [None]
  - ESCHERICHIA URINARY TRACT INFECTION [None]
  - NEPHROLITHIASIS [None]
  - RENAL COLIC [None]
